FAERS Safety Report 15556799 (Version 1)
Quarter: 2018Q4

REPORT INFORMATION
  Report Type: Spontaneous
  Country: US (occurrence: US)
  Receive Date: 20181026
  Receipt Date: 20181026
  Transmission Date: 20190205
  Serious: Yes (Hospitalization, Other)
  Sender: FDA-Public Use
  Company Number: US-IMPAX LABORATORIES, INC-2018-IPXL-03500

PATIENT
  Age: 30 Year
  Sex: Female

DRUGS (9)
  1. ADRENACLICK [Suspect]
     Active Substance: EPINEPHRINE
     Indication: CIRCULATORY COLLAPSE
     Dosage: UNK, CONTINUOUS INFUSION
     Route: 042
  2. PROPRANOLOL HYDROCHLORIDE IR [Suspect]
     Active Substance: PROPRANOLOL HYDROCHLORIDE
     Indication: INTENTIONAL OVERDOSE
     Dosage: UNK, SINGLE
     Route: 048
  3. NOREPINEPHRINE. [Suspect]
     Active Substance: NOREPINEPHRINE
     Indication: INTENTIONAL OVERDOSE
     Dosage: UNK, CONTINUOUS INFUSION
     Route: 042
  4. NOREPINEPHRINE. [Suspect]
     Active Substance: NOREPINEPHRINE
     Indication: RESUSCITATION
     Dosage: UNK, TITRATED OFF 4 HOURS
     Route: 042
  5. AMITRIPTYLINE [Suspect]
     Active Substance: AMITRIPTYLINE
     Indication: INTENTIONAL OVERDOSE
     Dosage: UNK, SINGLE
     Route: 048
  6. ADRENACLICK [Suspect]
     Active Substance: EPINEPHRINE
     Indication: PRODUCT USE IN UNAPPROVED INDICATION
  7. QUETIAPINE. [Suspect]
     Active Substance: QUETIAPINE
     Indication: INTENTIONAL OVERDOSE
     Dosage: UNK, SINGLE
     Route: 048
  8. PRAZOSIN. [Suspect]
     Active Substance: PRAZOSIN
     Indication: INTENTIONAL OVERDOSE
     Dosage: UNK, SINGLE
     Route: 048
  9. LAMOTRIGINE ODT [Suspect]
     Active Substance: LAMOTRIGINE
     Indication: INTENTIONAL OVERDOSE
     Dosage: UNK, SINGLE
     Route: 048

REACTIONS (5)
  - Atrioventricular block first degree [Recovered/Resolved]
  - Intentional overdose [Recovered/Resolved]
  - Drug ineffective for unapproved indication [Unknown]
  - Coma [Recovered/Resolved]
  - Circulatory collapse [Recovered/Resolved]
